FAERS Safety Report 12324235 (Version 1)
Quarter: 2016Q2

REPORT INFORMATION
  Report Type: Spontaneous
  Country: US (occurrence: US)
  Receive Date: 20160502
  Receipt Date: 20160502
  Transmission Date: 20160815
  Serious: No
  Sender: FDA-Public Use
  Company Number: US-ABBVIE-16K-163-1594127-00

PATIENT
  Sex: Male

DRUGS (6)
  1. ANDROGEL [Suspect]
     Active Substance: TESTOSTERONE
     Dosage: 1 PUMP
     Route: 061
  2. ANDROGEL [Suspect]
     Active Substance: TESTOSTERONE
     Dosage: 2 PUMPS 5 DAYS A WEEK AND OTHER DAYS 1 PUMP
     Route: 061
  3. TOPROL XL [Concomitant]
     Active Substance: METOPROLOL SUCCINATE
     Indication: PRODUCT USED FOR UNKNOWN INDICATION
  4. CLONAZEPAM. [Concomitant]
     Active Substance: CLONAZEPAM
     Indication: PRODUCT USED FOR UNKNOWN INDICATION
  5. ANDROGEL [Suspect]
     Active Substance: TESTOSTERONE
     Dosage: 2  PUMPS THREE TIMES A WEEK ALTERNATED WITH OTHER DAYS BEING 1 PUMP
     Route: 061
  6. ANDROGEL [Suspect]
     Active Substance: TESTOSTERONE
     Indication: BLOOD TESTOSTERONE DECREASED
     Dosage: 2 PUMPS
     Route: 061

REACTIONS (3)
  - Blood testosterone decreased [Not Recovered/Not Resolved]
  - Rash [Not Recovered/Not Resolved]
  - Photosensitivity reaction [Not Recovered/Not Resolved]
